FAERS Safety Report 9792689 (Version 1)
Quarter: 2014Q1

REPORT INFORMATION
  Report Type: Spontaneous
  Country: US (occurrence: US)
  Receive Date: 20140102
  Receipt Date: 20140102
  Transmission Date: 20141002
  Serious: No
  Sender: FDA-Public Use
  Company Number: US-SANOFI-AVENTIS-2013SA020529

PATIENT
  Age: 27 Year
  Sex: Female

DRUGS (10)
  1. AUBAGIO [Suspect]
     Indication: MULTIPLE SCLEROSIS
     Route: 048
     Dates: start: 20130123
  2. SOMA [Concomitant]
  3. DEPAKOTE [Concomitant]
  4. AMITRIPTYLINE HYDROCHLORIDE [Concomitant]
  5. MORPHINE SULFATE [Concomitant]
  6. PRAMIPEXOLE [Concomitant]
  7. OXYBUTYNIN [Concomitant]
  8. PROZAC [Concomitant]
  9. ABILIFY [Concomitant]
  10. OXYCONTIN [Concomitant]

REACTIONS (3)
  - Urinary tract obstruction [Unknown]
  - Headache [Recovered/Resolved]
  - Drug dose omission [Unknown]
